FAERS Safety Report 9104411 (Version 1)
Quarter: 2013Q1

REPORT INFORMATION
  Report Type: Spontaneous
  Country: US (occurrence: US)
  Receive Date: 20130219
  Receipt Date: 20130219
  Transmission Date: 20140127
  Serious: Yes (Hospitalization)
  Sender: FDA-Public Use
  Company Number: US-BIOGENIDEC-144421

PATIENT
  Age: 45 Year
  Sex: Male
  Weight: 72 kg

DRUGS (4)
  1. AVONEX [Suspect]
     Indication: MULTIPLE SCLEROSIS
     Route: 030
     Dates: start: 20001027, end: 20001220
  2. VALIUM [Concomitant]
     Indication: MUSCLE SPASMS
  3. ZOLOFT [Concomitant]
     Indication: DEPRESSION
  4. CANNABIS SATIVA SUBSP. INDICA TOP [Concomitant]
     Indication: MULTIPLE SCLEROSIS

REACTIONS (4)
  - Myocardial infarction [Recovered/Resolved]
  - Coronary artery occlusion [Recovered/Resolved]
  - Confusional state [Recovered/Resolved]
  - Influenza like illness [Recovered/Resolved]
